FAERS Safety Report 17228032 (Version 1)
Quarter: 2020Q1

REPORT INFORMATION
  Report Type: Spontaneous
  Country: DE (occurrence: DE)
  Receive Date: 20200103
  Receipt Date: 20200103
  Transmission Date: 20200409
  Serious: Yes (Hospitalization)
  Sender: FDA-Public Use
  Company Number: DE-TEVA-2019-DE-1159873

PATIENT
  Age: 94 Year
  Sex: Female

DRUGS (4)
  1. RAMIPRIL. [Concomitant]
     Active Substance: RAMIPRIL
     Dosage: 5 MILLIGRAM DAILY; 5 MG, 0-0-1-0
  2. ACETYLSALICYLS?URE [Concomitant]
     Active Substance: ASPIRIN
     Dosage: 100 MILLIGRAM DAILY; 100 MG, 1-0-0-0
  3. RAMIPRIL/HYDROCHLOROTHIAZIDE [Suspect]
     Active Substance: HYDROCHLOROTHIAZIDE\RAMIPRIL
     Dosage: 12.5|5 MG, 1-0-0-0
  4. TORASEMID [Suspect]
     Active Substance: TORSEMIDE
     Dosage: 5 MG, 1-0-0-0

REACTIONS (3)
  - Abdominal pain [Unknown]
  - Abdominal pain lower [Unknown]
  - Constipation [Unknown]
